FAERS Safety Report 15417385 (Version 1)
Quarter: 2018Q3

REPORT INFORMATION
  Report Type: Spontaneous
  Country: US (occurrence: US)
  Receive Date: 20180924
  Receipt Date: 20180924
  Transmission Date: 20181010
  Serious: No
  Sender: FDA-Public Use
  Company Number: US-B.I. PHARMACEUTICALS,INC./RIDGEFIELD-2018-BI-046657

PATIENT
  Age: 46 Year
  Sex: Male

DRUGS (2)
  1. FLOMAX [Suspect]
     Active Substance: TAMSULOSIN HYDROCHLORIDE
     Indication: BENIGN PROSTATIC HYPERPLASIA
     Dosage: FORM STRENGTH: 0.4 MG; FORMULATION: CAPSULE?ACTION(S) TAKEN WITH PRODUCT: DOSE NOT CHANGED
     Route: 048
     Dates: start: 201706
  2. FLOMAX [Suspect]
     Active Substance: TAMSULOSIN HYDROCHLORIDE
     Indication: PROSTATITIS

REACTIONS (8)
  - Oropharyngeal pain [Unknown]
  - Migraine with aura [Recovered/Resolved]
  - Hypoaesthesia [Unknown]
  - Headache [Unknown]
  - Dizziness [Unknown]
  - Heart rate increased [Unknown]
  - Back pain [Unknown]
  - Sneezing [Unknown]

NARRATIVE: CASE EVENT DATE: 20180823
